FAERS Safety Report 8322512-0 (Version None)
Quarter: 2012Q2

REPORT INFORMATION
  Report Type: 
  Country: None (occurrence: None)
  Receive Date: 20120430
  Receipt Date: 20100202
  Transmission Date: 20120825
  Serious: No
  Sender: FDA-Public Use
  Company Number: US-TEVA-2010000680

PATIENT
  Sex: Male
  Weight: 127.12 kg

DRUGS (1)
  1. NUVIGIL [Suspect]
     Indication: SLEEP APNOEA SYNDROME
     Dosage: 500 MILLIGRAM;
     Route: 048
     Dates: start: 20090801, end: 20100128

REACTIONS (6)
  - BRONCHITIS [None]
  - NASAL CONGESTION [None]
  - TRACHEITIS [None]
  - COUGH [None]
  - SINUSITIS [None]
  - DRUG PRESCRIBING ERROR [None]
